FAERS Safety Report 5960683-1 (Version None)
Quarter: 2008Q4

REPORT INFORMATION
  Report Type: 
  Country: None (occurrence: None)
  Receive Date: 20081120
  Receipt Date: 20081110
  Transmission Date: 20090506
  Serious: No
  Sender: FDA-Public Use
  Company Number: JP-PFIZER INC-2008091266

PATIENT
  Age: 68 Year
  Sex: Male

DRUGS (1)
  1. CARDENALIN [Suspect]
     Indication: HYPERTENSION
     Dosage: TEXT:2 MG DAILY
     Route: 048
     Dates: start: 20070113

REACTIONS (1)
  - NO ADVERSE EVENT [None]
